FAERS Safety Report 6638899-0 (Version None)
Quarter: 2010Q1

REPORT INFORMATION
  Report Type: 
  Country: None (occurrence: None)
  Receive Date: 20100317
  Receipt Date: 20100303
  Transmission Date: 20100710
  Serious: Yes (Hospitalization, Other)
  Sender: FDA-Public Use
  Company Number: PHHY2010US12333

PATIENT
  Age: 27 Year
  Sex: Female

DRUGS (3)
  1. GLEEVEC [Suspect]
     Dosage: 400 MG, BID
  2. CYTARABINE [Suspect]
     Dosage: HIGH DOSE
  3. MITOXANTRONE [Suspect]

REACTIONS (11)
  - BRAIN NATRIURETIC PEPTIDE INCREASED [None]
  - CAECITIS [None]
  - CARDIAC MURMUR [None]
  - ESCHERICHIA SEPSIS [None]
  - HEADACHE [None]
  - LEUKAEMIC INFILTRATION BRAIN [None]
  - SEPTIC SHOCK [None]
  - SINUS TACHYCARDIA [None]
  - STEM CELL TRANSPLANT [None]
  - STREPTOCOCCAL SEPSIS [None]
  - VENTRICULAR HYPOKINESIA [None]
